FAERS Safety Report 12607475 (Version 1)
Quarter: 2016Q3

REPORT INFORMATION
  Report Type: Spontaneous
  Country: DE (occurrence: DE)
  Receive Date: 20160729
  Receipt Date: 20160729
  Transmission Date: 20161109
  Serious: Yes (Disabling)
  Sender: FDA-Public Use
  Company Number: DE-WATSON-2016-16620

PATIENT
  Age: 81 Year
  Sex: Female

DRUGS (1)
  1. LEVOFLOXACIN (UNKNOWN) [Suspect]
     Active Substance: LEVOFLOXACIN
     Indication: INFECTION PROPHYLAXIS
     Dosage: 1 DF, DAILY
     Route: 048
     Dates: start: 20160707, end: 20160712

REACTIONS (2)
  - Tendon rupture [Not Recovered/Not Resolved]
  - Tendonitis [Not Recovered/Not Resolved]

NARRATIVE: CASE EVENT DATE: 20160715
